FAERS Safety Report 9403291 (Version 2)
Quarter: 2013Q3

REPORT INFORMATION
  Report Type: Spontaneous
  Country: US (occurrence: US)
  Receive Date: 20130716
  Receipt Date: 20130806
  Transmission Date: 20140515
  Serious: Yes (Other)
  Sender: FDA-Public Use
  Company Number: US-PFIZER INC-2013203767

PATIENT
  Age: 23 Year
  Sex: Male

DRUGS (1)
  1. ZYVOX [Suspect]
     Indication: SINUSITIS BACTERIAL
     Dosage: 600 MG, 2X/DAY
     Route: 048
     Dates: start: 20130617, end: 20130701

REACTIONS (1)
  - Cognitive disorder [Recovering/Resolving]
